FAERS Safety Report 5024302-3 (Version None)
Quarter: 2006Q2

REPORT INFORMATION
  Report Type: 
  Country: None (occurrence: None)
  Receive Date: 20060608
  Receipt Date: 20060608
  Transmission Date: 20061013
  Serious: Yes (Life-Threatening)
  Sender: FDA-Public Use
  Company Number: None

PATIENT
  Age: 94 Year
  Sex: Female
  Weight: 44.4525 kg

DRUGS (2)
  1. PREDNISONE TAB [Suspect]
     Indication: INFLAMMATION
     Dosage: 80 MG DAILY ORAL
     Route: 048
     Dates: start: 20060118, end: 20060120
  2. PREDNISONE TAB [Suspect]
     Indication: LUNG DISORDER
     Dosage: 80 MG DAILY ORAL
     Route: 048
     Dates: start: 20060118, end: 20060120

REACTIONS (8)
  - DIABETES MELLITUS [None]
  - DIABETES MELLITUS INADEQUATE CONTROL [None]
  - DRUG DISPENSING ERROR [None]
  - INCORRECT DOSE ADMINISTERED [None]
  - LUNG NEOPLASM MALIGNANT [None]
  - MEDICATION ERROR [None]
  - PULMONARY OEDEMA [None]
  - VISUAL ACUITY REDUCED [None]
